FAERS Safety Report 11395119 (Version 2)
Quarter: 2016Q2

REPORT INFORMATION
  Report Type: Spontaneous
  Country: US (occurrence: US)
  Receive Date: 20150819
  Receipt Date: 20160620
  Transmission Date: 20160815
  Serious: No
  Sender: FDA-Public Use
  Company Number: US-TEVA-587387USA

PATIENT
  Sex: Female

DRUGS (1)
  1. COPAXONE [Suspect]
     Active Substance: GLATIRAMER ACETATE
     Indication: MULTIPLE SCLEROSIS
     Route: 058
     Dates: start: 20150806

REACTIONS (7)
  - Vision blurred [Unknown]
  - Memory impairment [Unknown]
  - Injection site pruritus [Unknown]
  - Urticaria [Unknown]
  - Product use issue [Unknown]
  - Injection site reaction [Unknown]
  - Somnolence [Unknown]
